FAERS Safety Report 14527157 (Version 1)
Quarter: 2018Q1

REPORT INFORMATION
  Report Type: Spontaneous
  Country: US (occurrence: US)
  Receive Date: 20180213
  Receipt Date: 20180213
  Transmission Date: 20180509
  Serious: No
  Sender: FDA-Public Use
  Company Number: US-SHIRE-US201803417

PATIENT
  Sex: Male

DRUGS (1)
  1. VYVANSE [Suspect]
     Active Substance: LISDEXAMFETAMINE DIMESYLATE
     Indication: ATTENTION DEFICIT/HYPERACTIVITY DISORDER
     Dosage: 140 MG, 1X/DAY:QD

REACTIONS (5)
  - Drug dependence [Unknown]
  - Incorrect dose administered [Unknown]
  - Weight decreased [Unknown]
  - Anxiety disorder [Unknown]
  - Prescribed overdose [Unknown]
